FAERS Safety Report 5491786-6 (Version None)
Quarter: 2007Q4

REPORT INFORMATION
  Report Type: 
  Country: None (occurrence: None)
  Receive Date: 20071019
  Receipt Date: 20071019
  Transmission Date: 20080405
  Serious: Yes (Hospitalization)
  Sender: FDA-Public Use
  Company Number: None

PATIENT
  Age: 69 Year
  Sex: Male

DRUGS (1)
  1. LABETALOL HCL [Suspect]
     Dosage: 10MG  IV PUSH
     Route: 042
     Dates: start: 20070516

REACTIONS (3)
  - DRUG INTOLERANCE [None]
  - POST PROCEDURAL COMPLICATION [None]
  - URINARY RETENTION [None]
